FAERS Safety Report 7272670-4 (Version None)
Quarter: 2010Q4

REPORT INFORMATION
  Report Type: 
  Country: None (occurrence: None)
  Receive Date: 20101206
  Receipt Date: 20100930
  Transmission Date: 20110411
  Serious: No
  Sender: FDA-Public Use
  Company Number: 2010SP052558

PATIENT
  Age: 60 Year
  Sex: Female

DRUGS (7)
  1. SAPHRIS [Suspect]
     Indication: SCHIZOPHRENIA
     Dosage: 5 MG;BID;PO
     Route: 048
     Dates: start: 20100801
  2. ZOCOR [Concomitant]
  3. HYDROCHLOROTHIAZIDE [Concomitant]
  4. AMLODIPINE [Concomitant]
  5. ASA [Concomitant]
  6. M.V.I. [Concomitant]
  7. METFORMIN [Concomitant]

REACTIONS (4)
  - INCORRECT ROUTE OF DRUG ADMINISTRATION [None]
  - NASOPHARYNGITIS [None]
  - TONGUE BLISTERING [None]
  - UPPER RESPIRATORY TRACT INFECTION [None]
